FAERS Safety Report 12754829 (Version 1)
Quarter: 2016Q3

REPORT INFORMATION
  Report Type: Report from Study
  Country: US (occurrence: TR)
  Receive Date: 20160916
  Receipt Date: 20160916
  Transmission Date: 20161109
  Serious: Yes (Other)
  Sender: FDA-Public Use
  Company Number: TR-FRI-1000087508

PATIENT
  Age: 16 Year
  Sex: Female

DRUGS (13)
  1. NORVASC [Concomitant]
     Active Substance: AMLODIPINE BESYLATE
     Indication: HYPERTENSION
     Route: 065
     Dates: start: 20160902
  2. FORMULA SNH [Concomitant]
     Indication: HYPERTENSION
     Route: 065
     Dates: start: 201608
  3. AVYCAZ [Suspect]
     Active Substance: AVIBACTAM SODIUM\CEFTAZIDIME
     Route: 042
     Dates: start: 20160903, end: 20160903
  4. SELECTRA [Concomitant]
     Indication: HYPERTENSION
     Route: 065
     Dates: start: 201403
  5. THLOL [Concomitant]
     Indication: HYPERTENSION
     Route: 065
     Dates: start: 20160830, end: 20160831
  6. AVYCAZ [Suspect]
     Active Substance: AVIBACTAM SODIUM\CEFTAZIDIME
     Route: 042
     Dates: start: 20160903, end: 20160903
  7. DELIX [Concomitant]
     Active Substance: RAMIPRIL
     Indication: HYPERTENSION
     Route: 065
     Dates: start: 20151022
  8. AVYCAZ [Suspect]
     Active Substance: AVIBACTAM SODIUM\CEFTAZIDIME
     Indication: URINARY TRACT INFECTION
     Route: 042
     Dates: start: 20160901, end: 20160902
  9. AVYCAZ [Suspect]
     Active Substance: AVIBACTAM SODIUM\CEFTAZIDIME
     Route: 042
     Dates: start: 20160902, end: 20160902
  10. AVYCAZ [Suspect]
     Active Substance: AVIBACTAM SODIUM\CEFTAZIDIME
     Route: 042
     Dates: start: 20160902, end: 20160902
  11. AVYCAZ [Suspect]
     Active Substance: AVIBACTAM SODIUM\CEFTAZIDIME
     Route: 042
     Dates: start: 20160902, end: 20160902
  12. TAMOL [Concomitant]
     Active Substance: ACETAMINOPHEN
     Indication: HYPERTENSION
     Route: 065
     Dates: start: 20160830, end: 20160831
  13. BUSCOPAN [Concomitant]
     Active Substance: BUTYLSCOPOLAMINE BROMIDE
     Indication: HYPERTENSION
     Route: 065
     Dates: start: 20160901

REACTIONS (1)
  - Nervous system disorder [Recovered/Resolved]

NARRATIVE: CASE EVENT DATE: 20160903
